FAERS Safety Report 14025984 (Version 1)
Quarter: 2017Q3

REPORT INFORMATION
  Report Type: Report from Study
  Country: US (occurrence: US)
  Receive Date: 20170929
  Receipt Date: 20170929
  Transmission Date: 20171128
  Serious: Yes (Other)
  Sender: FDA-Public Use
  Company Number: US-AMGEN-USASL2017138522

PATIENT
  Age: 66 Year
  Sex: Male
  Weight: 99.32 kg

DRUGS (5)
  1. REPATHA [Suspect]
     Active Substance: EVOLOCUMAB
     Indication: HYPERLIPIDAEMIA
     Dosage: 140 MG, Q4WK
     Route: 058
     Dates: start: 20160209
  2. REPATHA [Suspect]
     Active Substance: EVOLOCUMAB
     Dosage: 140 MG, Q3WK
     Route: 058
     Dates: start: 20170223
  3. REPATHA [Suspect]
     Active Substance: EVOLOCUMAB
     Dosage: 140 MG, Q2WK
     Route: 065
  4. REPATHA [Suspect]
     Active Substance: EVOLOCUMAB
     Dosage: 140 MG, QMO
     Route: 065
     Dates: start: 2016
  5. ROSUVASTATIN. [Concomitant]
     Active Substance: ROSUVASTATIN
     Dosage: UNK
     Dates: start: 20160802

REACTIONS (2)
  - Low density lipoprotein decreased [Recovered/Resolved]
  - Blood cholesterol decreased [Unknown]

NARRATIVE: CASE EVENT DATE: 20160804
